FAERS Safety Report 11931333 (Version 1)
Quarter: 2016Q1

REPORT INFORMATION
  Report Type: Spontaneous
  Country: US (occurrence: US)
  Receive Date: 20160120
  Receipt Date: 20160120
  Transmission Date: 20160526
  Serious: No
  Sender: FDA-Public Use
  Company Number: US-INCYTE CORPORATION-2015IN005329

PATIENT
  Sex: Female

DRUGS (10)
  1. JAKAFI [Suspect]
     Active Substance: RUXOLITINIB
     Indication: MYELOFIBROSIS
     Dosage: 15 MG, BID
     Route: 048
  2. XANAX [Concomitant]
     Active Substance: ALPRAZOLAM
  3. ALEVE [Concomitant]
     Active Substance: NAPROXEN SODIUM
  4. DIAZEPAM. [Concomitant]
     Active Substance: DIAZEPAM
  5. HYDROXYUREA. [Concomitant]
     Active Substance: HYDROXYUREA
  6. VYVANSE [Concomitant]
     Active Substance: LISDEXAMFETAMINE DIMESYLATE
  7. HYDROCODONE/PARACETAMOL [Concomitant]
     Active Substance: ACETAMINOPHEN\HYDROCODONE BITARTRATE
  8. LEXAPRO [Concomitant]
     Active Substance: ESCITALOPRAM OXALATE
  9. ZYFLO [Concomitant]
     Active Substance: ZILEUTON
  10. TRAMADOL. [Concomitant]
     Active Substance: TRAMADOL

REACTIONS (1)
  - Bone pain [Not Recovered/Not Resolved]
